FAERS Safety Report 7941314-8 (Version None)
Quarter: 2011Q4

REPORT INFORMATION
  Report Type: 
  Country: None (occurrence: None)
  Receive Date: 20111128
  Receipt Date: 20111115
  Transmission Date: 20120403
  Serious: Yes (Other)
  Sender: FDA-Public Use
  Company Number: US-JNJFOC-20111106534

PATIENT
  Sex: Female

DRUGS (6)
  1. EFFEXOR XR [Suspect]
     Indication: MAJOR DEPRESSION
     Route: 048
     Dates: start: 20100701
  2. TOPAMAX [Suspect]
     Indication: BIPOLAR DISORDER
     Route: 048
  3. EFFEXOR XR [Suspect]
     Indication: ANXIETY
     Route: 048
     Dates: start: 20100701
  4. EFFEXOR XR [Suspect]
     Indication: BIPOLAR DISORDER
     Route: 048
     Dates: start: 20100701
  5. TOPAMAX [Suspect]
     Indication: MAJOR DEPRESSION
     Route: 048
  6. TOPAMAX [Suspect]
     Indication: ANXIETY
     Route: 048

REACTIONS (4)
  - BLOOD GLUCOSE INCREASED [None]
  - VITAMIN D DEFICIENCY [None]
  - APATHY [None]
  - MEMORY IMPAIRMENT [None]
